FAERS Safety Report 10752399 (Version 1)
Quarter: 2015Q1

REPORT INFORMATION
  Report Type: Spontaneous
  Country: US (occurrence: US)
  Receive Date: 20150130
  Receipt Date: 20150130
  Transmission Date: 20150721
  Serious: Yes (Hospitalization, Other)
  Sender: FDA-Public Use
  Company Number: US-GLAXOSMITHKLINE-US2015008842

PATIENT
  Age: 76 Year
  Sex: Male

DRUGS (11)
  1. ASPIRIN. [Concomitant]
     Active Substance: ASPIRIN
  2. PULMICORT TURBUHALER [Concomitant]
     Active Substance: BUDESONIDE
  3. METOPROLOL [Concomitant]
     Active Substance: METOPROLOL
  4. VENTOLIN HFA [Suspect]
     Active Substance: ALBUTEROL SULFATE
     Dosage: 2 PUFF(S), VA
     Route: 055
     Dates: start: 2012
  5. ALBUTEROL. [Concomitant]
     Active Substance: ALBUTEROL
  6. IMDUR [Concomitant]
     Active Substance: ISOSORBIDE MONONITRATE
  7. XANAX [Concomitant]
     Active Substance: ALPRAZOLAM
  8. LASIX [Concomitant]
     Active Substance: FUROSEMIDE
  9. DILTIAZEM [Concomitant]
     Active Substance: DILTIAZEM
  10. IPRATROPIUM [Concomitant]
     Active Substance: IPRATROPIUM
  11. ZITHROMAX [Concomitant]
     Active Substance: AZITHROMYCIN DIHYDRATE

REACTIONS (1)
  - Lung operation [Unknown]

NARRATIVE: CASE EVENT DATE: 201311
